FAERS Safety Report 4930844-9 (Version None)
Quarter: 2006Q1

REPORT INFORMATION
  Report Type: 
  Country: None (occurrence: None)
  Receive Date: 20060227
  Receipt Date: 20060215
  Transmission Date: 20060701
  Serious: Yes (Hospitalization)
  Sender: FDA-Public Use
  Company Number: 200510575BYL

PATIENT
  Age: 92 Year
  Sex: Female

DRUGS (7)
  1. GLUCOBAY (ACARBOSE) [Suspect]
     Indication: DIABETES MELLITUS
     Dosage: 150 MG, TOTAL DAILY, ORAL; 50 MG, TID, ORAL
     Route: 048
     Dates: start: 20031104, end: 20041001
  2. GLUCOBAY (ACARBOSE) [Suspect]
     Indication: DIABETES MELLITUS
     Dosage: 150 MG, TOTAL DAILY, ORAL; 50 MG, TID, ORAL
     Route: 048
     Dates: start: 20050101, end: 20051018
  3. DAONIL [Concomitant]
  4. ADALAT [Concomitant]
  5. HYPEN [Concomitant]
  6. SELBEX [Concomitant]
  7. LIPOVAS    BANYU [Concomitant]

REACTIONS (2)
  - GLYCOSYLATED HAEMOGLOBIN INCREASED [None]
  - HYPOGLYCAEMIA [None]
